FAERS Safety Report 5255638-9 (Version None)
Quarter: 2007Q1

REPORT INFORMATION
  Report Type: 
  Country: None (occurrence: None)
  Receive Date: 20070305
  Receipt Date: 20070221
  Transmission Date: 20070707
  Serious: Yes (Other)
  Sender: FDA-Public Use
  Company Number: US-PFIZER INC-2007015326

PATIENT
  Sex: Female
  Weight: 67.1 kg

DRUGS (6)
  1. CHANTIX [Suspect]
     Indication: SMOKING CESSATION THERAPY
  2. RISPERDAL [Concomitant]
  3. NEURONTIN [Concomitant]
  4. VALIUM [Concomitant]
  5. ALBUTEROL [Concomitant]
     Route: 055
  6. QVAR 40 [Concomitant]
     Route: 055

REACTIONS (3)
  - ABNORMAL DREAMS [None]
  - INSOMNIA [None]
  - PANIC ATTACK [None]
